FAERS Safety Report 8232260-3 (Version None)
Quarter: 2012Q1

REPORT INFORMATION
  Report Type: 
  Country: None (occurrence: None)
  Receive Date: 20120323
  Receipt Date: 20120314
  Transmission Date: 20120608
  Serious: Yes (Hospitalization)
  Sender: FDA-Public Use
  Company Number: US-ACTELION-A-NJ2012-61211

PATIENT

DRUGS (3)
  1. REVATIO [Concomitant]
  2. COUMADIN [Concomitant]
  3. TRACLEER [Suspect]
     Indication: PULMONARY ARTERIAL HYPERTENSION
     Dosage: UNK
     Route: 048
     Dates: start: 20100408

REACTIONS (4)
  - PYREXIA [None]
  - MALAISE [None]
  - SEPSIS [None]
  - CARDIAC INFECTION [None]
